FAERS Safety Report 18707444 (Version 1)
Quarter: 2021Q1

REPORT INFORMATION
  Report Type: Spontaneous
  Country: US (occurrence: US)
  Receive Date: 20210106
  Receipt Date: 20210106
  Transmission Date: 20210419
  Serious: No
  Sender: FDA-Public Use
  Company Number: None

PATIENT
  Age: 68 Year
  Sex: Female
  Weight: 83.91 kg

DRUGS (13)
  1. PROBIOTIC [Concomitant]
     Active Substance: PROBIOTICS NOS
  2. VITAMIN D [Concomitant]
     Active Substance: VITAMIN D NOS
  3. CAPECITABINE. [Suspect]
     Active Substance: CAPECITABINE
     Indication: BREAST CANCER
     Route: 048
     Dates: start: 20180206, end: 20210106
  4. CALCIUM [Concomitant]
     Active Substance: CALCIUM
  5. IRBESARTAN. [Concomitant]
     Active Substance: IRBESARTAN
  6. ASPIRIN 81 [Concomitant]
     Active Substance: ASPIRIN
  7. LEVOTHYROXINE. [Concomitant]
     Active Substance: LEVOTHYROXINE
  8. LORAZEPAM. [Concomitant]
     Active Substance: LORAZEPAM
  9. METOPROLOL SUCCINATE. [Concomitant]
     Active Substance: METOPROLOL SUCCINATE
  10. MULTIVITAMIN [Concomitant]
     Active Substance: VITAMINS
  11. SIMVASTATIN. [Concomitant]
     Active Substance: SIMVASTATIN
  12. FASLODEX [Concomitant]
     Active Substance: FULVESTRANT
  13. LOPERAMIDE [Concomitant]
     Active Substance: LOPERAMIDE

REACTIONS (1)
  - Disease progression [None]

NARRATIVE: CASE EVENT DATE: 20210106
